FAERS Safety Report 5122913-8 (Version None)
Quarter: 2006Q4

REPORT INFORMATION
  Report Type: 
  Country: None (occurrence: None)
  Receive Date: 20061004
  Receipt Date: 20061004
  Transmission Date: 20070319
  Serious: No
  Sender: FDA-Public Use
  Company Number: None

PATIENT
  Age: 57 Year
  Sex: Male
  Weight: 99 kg

DRUGS (2)
  1. OXAPROZIN [Suspect]
     Indication: INFLAMMATION
     Dosage: 1200 MG PO QD
     Route: 048
     Dates: start: 20051104, end: 20051110
  2. OXAPROZIN [Suspect]
     Indication: PAIN
     Dosage: 1200 MG PO QD
     Route: 048
     Dates: start: 20051104, end: 20051110

REACTIONS (1)
  - DIARRHOEA [None]
